FAERS Safety Report 21332253 (Version 1)
Quarter: 2022Q3

REPORT INFORMATION
  Report Type: Spontaneous
  Country: GB (occurrence: GB)
  Receive Date: 20220914
  Receipt Date: 20220914
  Transmission Date: 20221026
  Serious: Yes (Life-Threatening, Other)
  Sender: FDA-Public Use
  Company Number: GB-MHRA-MED-202208110933397640-WGNPS

PATIENT

DRUGS (6)
  1. BUPIVACAINE HYDROCHLORIDE [Suspect]
     Active Substance: BUPIVACAINE HYDROCHLORIDE
     Indication: Knee arthroplasty
     Dosage: UNK
     Route: 065
     Dates: start: 20220810
  2. CHLORHEXIDINE [Suspect]
     Active Substance: CHLORHEXIDINE
     Indication: Knee arthroplasty
     Dosage: UNK
     Route: 065
  3. FENTANYL [Suspect]
     Active Substance: FENTANYL
     Indication: Knee arthroplasty
     Dosage: UNK
     Route: 065
  4. GENTAMICIN [Suspect]
     Active Substance: GENTAMICIN
     Indication: Knee arthroplasty
     Dosage: UNK
     Route: 065
     Dates: start: 20220810
  5. LIDOCAINE [Suspect]
     Active Substance: LIDOCAINE
     Indication: Knee arthroplasty
     Dosage: UNK
     Route: 065
  6. TEICOPLANIN [Suspect]
     Active Substance: TEICOPLANIN
     Indication: Prophylaxis
     Dosage: UNK
     Route: 065
     Dates: start: 20220810

REACTIONS (4)
  - Anaphylactic reaction [Recovered/Resolved]
  - Erythema [Unknown]
  - Lip swelling [Unknown]
  - Blood pressure decreased [Unknown]

NARRATIVE: CASE EVENT DATE: 20220810
